FAERS Safety Report 17981214 (Version 2)
Quarter: 2020Q3

REPORT INFORMATION
  Report Type: Report from Study
  Country: FR (occurrence: FR)
  Receive Date: 20200705
  Receipt Date: 20200727
  Transmission Date: 20201103
  Serious: Yes (Hospitalization)
  Sender: FDA-Public Use
  Company Number: FR-ALEXION-A202009454

PATIENT

DRUGS (4)
  1. ECULIZUMAB [Suspect]
     Active Substance: ECULIZUMAB
     Dosage: 600 MG, Q2W
     Route: 065
     Dates: start: 20190513
  2. ECULIZUMAB [Suspect]
     Active Substance: ECULIZUMAB
     Dosage: 600 MG, UNK
     Route: 065
     Dates: start: 20200626
  3. ECULIZUMAB [Suspect]
     Active Substance: ECULIZUMAB
     Dosage: 600 MG, UNK
     Route: 065
     Dates: start: 20200620
  4. ECULIZUMAB [Suspect]
     Active Substance: ECULIZUMAB
     Indication: ATYPICAL HAEMOLYTIC URAEMIC SYNDROME
     Dosage: 600 MG, QW (ONCE PER WEEK)
     Route: 065
     Dates: start: 20190410, end: 20190418

REACTIONS (1)
  - Lithiasis [Not Recovered/Not Resolved]

NARRATIVE: CASE EVENT DATE: 20200422
